FAERS Safety Report 5766740-7 (Version None)
Quarter: 2008Q2

REPORT INFORMATION
  Report Type: 
  Country: None (occurrence: None)
  Receive Date: 20080609
  Receipt Date: 20080529
  Transmission Date: 20081010
  Serious: No
  Sender: FDA-Public Use
  Company Number: 163-21880-08030857

PATIENT
  Age: 83 Year
  Sex: Female

DRUGS (8)
  1. REVLIMID [Suspect]
     Indication: MULTIPLE MYELOMA
     Dosage: 25 MG, 1 IN 1 D, ORAL
     Route: 048
     Dates: start: 20080205
  2. CALCIUM (CALCIUM) (TABLETS) [Concomitant]
  3. CENTRUM (CENTRUM) (TABLETS) [Concomitant]
  4. SENNA (SENNA) (TABLETS) [Concomitant]
  5. ASPIRIN (ACETYLSALICYLIC ACID) (ENTERIC-COATED TABLET) [Concomitant]
  6. ZANTAC (RANITIDINE HYDROCHLORIDE) (CAPSULES) [Concomitant]
  7. FENTANYL [Concomitant]
  8. ANTIEMETIC (ANTIEMETICS AND ANTINASUSEANTS) (PILL) [Concomitant]

REACTIONS (1)
  - VAGINAL HAEMORRHAGE [None]
